FAERS Safety Report 6359132-3 (Version None)
Quarter: 2009Q3

REPORT INFORMATION
  Report Type: 
  Country: None (occurrence: None)
  Receive Date: 20090917
  Receipt Date: 20071003
  Transmission Date: 20100115
  Serious: Yes (Other)
  Sender: FDA-Public Use
  Company Number: US-ASTRAZENECA-2006UW22738

PATIENT
  Age: 35 Year
  Sex: Male
  Weight: 100.2 kg

DRUGS (12)
  1. SEROQUEL [Suspect]
     Indication: DEPRESSION
     Route: 048
     Dates: start: 20021001, end: 20040101
  2. SEROQUEL [Suspect]
     Indication: BIPOLAR DISORDER
     Route: 048
     Dates: start: 20021001, end: 20040101
  3. SEROQUEL [Suspect]
     Dosage: 200 MG AT 9 AM, 1400 AND 400 MG AT HS
     Route: 048
     Dates: start: 20041217
  4. SEROQUEL [Suspect]
     Dosage: 200 MG AT 9 AM, 1400 AND 400 MG AT HS
     Route: 048
     Dates: start: 20041217
  5. WELLBUTRIN XL [Concomitant]
     Dates: start: 20041217
  6. INSULIN [Concomitant]
     Dosage: INSULIN 70/30 34-55 UNITS
     Route: 058
     Dates: start: 19960101
  7. EFFEXOR [Concomitant]
     Dates: start: 20041227
  8. LEXAPRO [Concomitant]
     Dates: start: 20061227
  9. ATIVAN [Concomitant]
     Dates: start: 20061227
  10. KLONOPIN [Concomitant]
     Dates: start: 20060530
  11. LORTAB [Concomitant]
     Indication: PAIN
     Dates: start: 20060801
  12. NEURONTIN [Concomitant]
     Indication: NEUROPATHY PERIPHERAL
     Dates: start: 20060801

REACTIONS (6)
  - DIABETES MELLITUS [None]
  - HYPOGLYCAEMIA [None]
  - NEUROPATHY PERIPHERAL [None]
  - PANCREATOGENOUS DIABETES [None]
  - TYPE 1 DIABETES MELLITUS [None]
  - TYPE 2 DIABETES MELLITUS [None]
